FAERS Safety Report 7564733-0 (Version None)
Quarter: 2011Q2

REPORT INFORMATION
  Report Type: 
  Country: None (occurrence: None)
  Receive Date: 20110622
  Receipt Date: 20101007
  Transmission Date: 20111010
  Serious: Yes (Death, Other)
  Sender: FDA-Public Use
  Company Number: US-MYLANLABS-2010S1018558

PATIENT
  Age: 49 Year
  Sex: Female

DRUGS (14)
  1. CLONAZEPAM [Concomitant]
     Dosage: 1/2 TABLET
  2. CLONAZEPAM [Concomitant]
  3. TOPAMAX [Concomitant]
  4. CLOZAPINE [Suspect]
  5. FERROUS SULFATE TAB [Concomitant]
  6. VESICARE [Concomitant]
  7. CELEBREX [Concomitant]
  8. EFFEXOR XR [Concomitant]
  9. CLOZAPINE [Suspect]
  10. POTASSIUM [Concomitant]
  11. RISPERIDONE [Concomitant]
  12. SIMVASTATIN [Concomitant]
  13. AMITIZA [Concomitant]
  14. OMEPRAZOLE [Concomitant]

REACTIONS (2)
  - CENTRAL NERVOUS SYSTEM INFECTION [None]
  - GINGIVAL INFECTION [None]
